FAERS Safety Report 21232010 (Version 2)
Quarter: 2022Q3

REPORT INFORMATION
  Report Type: Spontaneous
  Country: AU (occurrence: AU)
  Receive Date: 20220819
  Receipt Date: 20220829
  Transmission Date: 20221027
  Serious: Yes (Other)
  Sender: FDA-Public Use
  Company Number: AU-drreddys-LIT/AUS/22/0153518

PATIENT
  Age: 80 Year
  Sex: Female

DRUGS (7)
  1. FEXOFENADINE HYDROCHLORIDE [Suspect]
     Active Substance: FEXOFENADINE HYDROCHLORIDE
     Indication: Acquired perforating dermatosis
  2. ACITRETIN [Suspect]
     Active Substance: ACITRETIN
     Indication: Acquired perforating dermatosis
  3. DOXYCYCLINE [Suspect]
     Active Substance: DOXYCYCLINE
     Indication: Acquired perforating dermatosis
  4. DAPSONE [Suspect]
     Active Substance: DAPSONE
     Indication: Acquired perforating dermatosis
  5. CYPROHEPTADINE [Suspect]
     Active Substance: CYPROHEPTADINE
     Indication: Acquired perforating dermatosis
  6. PREDNISOLONE [Suspect]
     Active Substance: PREDNISOLONE
     Indication: Acquired perforating dermatosis
  7. PREDNISOLONE [Suspect]
     Active Substance: PREDNISOLONE
     Dosage: HIGHER DOSES

REACTIONS (1)
  - Treatment failure [Unknown]
